FAERS Safety Report 4877472-1 (Version None)
Quarter: 2006Q1

REPORT INFORMATION
  Report Type: 
  Country: None (occurrence: None)
  Receive Date: 20060109
  Receipt Date: 20051223
  Transmission Date: 20060701
  Serious: Yes (Hospitalization)
  Sender: FDA-Public Use
  Company Number: A-US2004-05319

PATIENT
  Age: 31 Year
  Sex: Female

DRUGS (1)
  1. TRACLEER (BOSENTAN TABLET 62.5 MG US0 TABLET [Suspect]
     Indication: PULMONARY HYPERTENSION
     Dosage: ORAL
     Route: 048

REACTIONS (2)
  - LIVER DISORDER [None]
  - PAIN [None]
